FAERS Safety Report 12391060 (Version 2)
Quarter: 2025Q3

REPORT INFORMATION
  Report Type: Report from Study
  Country: US (occurrence: US)
  Receive Date: 20160520
  Receipt Date: 20250818
  Transmission Date: 20251021
  Serious: Yes (Other)
  Sender: AUROBINDO
  Company Number: US-MYLANLABS-2016M1020606

PATIENT
  Age: 48 Year
  Sex: Male

DRUGS (3)
  1. CLONAZEPAM [Suspect]
     Active Substance: CLONAZEPAM
     Indication: Product used for unknown indication
     Route: 048
  2. METFORMIN [Suspect]
     Active Substance: METFORMIN HYDROCHLORIDE
     Indication: Product used for unknown indication
     Route: 048
  3. TRAZODONE [Suspect]
     Active Substance: TRAZODONE HYDROCHLORIDE
     Indication: Product used for unknown indication
     Route: 048

REACTIONS (12)
  - Acute respiratory distress syndrome [Recovering/Resolving]
  - Coma [Recovering/Resolving]
  - Bradycardia [Recovering/Resolving]
  - Acute kidney injury [Recovering/Resolving]
  - Arrhythmia [Recovering/Resolving]
  - Hypoventilation [Recovering/Resolving]
  - Haemolysis [Recovering/Resolving]
  - Hypotension [Recovering/Resolving]
  - Hypoglycaemia [Recovering/Resolving]
  - Metabolic acidosis [Recovering/Resolving]
  - Acidosis [Recovering/Resolving]
  - Toxicity to various agents [Recovering/Resolving]
